FAERS Safety Report 11087716 (Version 3)
Quarter: 2015Q3

REPORT INFORMATION
  Report Type: Spontaneous
  Country: IT (occurrence: IT)
  Receive Date: 20150504
  Receipt Date: 20150805
  Transmission Date: 20151125
  Serious: Yes (Hospitalization)
  Sender: FDA-Public Use
  Company Number: IT-PFIZER INC-2015148301

PATIENT
  Age: 57 Year
  Sex: Male

DRUGS (5)
  1. PREFOLIC [Concomitant]
     Active Substance: LEUCOVORIN CALCIUM
  2. KLACID [Concomitant]
     Active Substance: CLARITHROMYCIN
     Indication: DYSPNOEA
     Dosage: UNK
     Dates: start: 201502
  3. CORDARONE [Suspect]
     Active Substance: AMIODARONE HYDROCHLORIDE
     Indication: ATRIAL FIBRILLATION
     Dosage: UNK
     Route: 065
     Dates: start: 2014, end: 201502
  4. EPOETIN ALFA [Concomitant]
     Active Substance: ERYTHROPOIETIN
  5. ASPIRINETTA [Concomitant]
     Active Substance: ASPIRIN

REACTIONS (4)
  - Cough [Not Recovered/Not Resolved]
  - Productive cough [Not Recovered/Not Resolved]
  - Dyspnoea [Not Recovered/Not Resolved]
  - Cardiomegaly [Unknown]

NARRATIVE: CASE EVENT DATE: 201407
